FAERS Safety Report 17133105 (Version 3)
Quarter: 2025Q3

REPORT INFORMATION
  Report Type: Spontaneous
  Country: EU (occurrence: EU)
  Receive Date: 20191210
  Receipt Date: 20250710
  Transmission Date: 20251021
  Serious: Yes (Other)
  Sender: AUROBINDO
  Company Number: EU-ASPEN-GLO2019FR012662

PATIENT
  Age: 55 Year
  Sex: Female

DRUGS (4)
  1. LIDOCAINE [Suspect]
     Active Substance: LIDOCAINE
     Indication: Anaesthesia
     Route: 051
  2. ROPIVACAINE HYDROCHLORIDE [Suspect]
     Active Substance: ROPIVACAINE HYDROCHLORIDE
     Indication: Anaesthesia
     Route: 051
  3. NEFOPAM [Concomitant]
     Active Substance: NEFOPAM
     Indication: Anaesthesia
     Route: 065
  4. ACETAMINOPHEN [Concomitant]
     Active Substance: ACETAMINOPHEN
     Indication: Anaesthesia
     Route: 065

REACTIONS (9)
  - Anxiety [Unknown]
  - Dysphonia [Recovered/Resolved]
  - Anaesthetic complication neurological [Not Recovered/Not Resolved]
  - Eyelid ptosis [Recovered/Resolved]
  - Dysgeusia [Recovered/Resolved]
  - Insomnia [Unknown]
  - Dysphagia [Recovered/Resolved]
  - Dizziness [Recovered/Resolved]
  - Wrong technique in product usage process [Unknown]
